FAERS Safety Report 4809670-7 (Version None)
Quarter: 2005Q4

REPORT INFORMATION
  Report Type: 
  Country: None (occurrence: None)
  Receive Date: 20051021
  Receipt Date: 20020827
  Transmission Date: 20060501
  Serious: No
  Sender: FDA-Public Use
  Company Number: USA020820417

PATIENT
  Sex: Female

DRUGS (2)
  1. ZYPREXA [Suspect]
     Dosage: 20 MG/DAY
     Dates: start: 20010801
  2. REGLAN [Concomitant]

REACTIONS (1)
  - PLATELET COUNT DECREASED [None]
